FAERS Safety Report 5320119-0 (Version None)
Quarter: 2007Q2

REPORT INFORMATION
  Report Type: 
  Country: None (occurrence: None)
  Receive Date: 20070503
  Receipt Date: 20070425
  Transmission Date: 20071010
  Serious: Yes (Hospitalization, Other)
  Sender: FDA-Public Use
  Company Number: 163-20785-07041391

PATIENT
  Age: 55 Year
  Sex: Male

DRUGS (12)
  1. THALOMID [Suspect]
     Indication: MULTIPLE MYELOMA
     Dosage: SEE IMAGE
     Route: 048
     Dates: start: 20011201, end: 20020401
  2. THALOMID [Suspect]
     Indication: MULTIPLE MYELOMA
     Dosage: SEE IMAGE
     Route: 048
     Dates: start: 20060715, end: 20060801
  3. ALLOPURINOL [Concomitant]
  4. LISINOPRIL [Concomitant]
  5. DIGOXIN (DIGOXIN) (TABLETS) [Concomitant]
  6. MAGNESIUM OXIDE (MAGNESIUM OXIDE) (TABLETS) [Concomitant]
  7. LORTAB (VICODIN) (10 MILLIGRAM) [Concomitant]
  8. MORPHINE [Concomitant]
  9. CELEXA [Concomitant]
  10. ASPIRIN [Concomitant]
  11. COREG [Concomitant]
  12. TORSEMIDE (TORASEMIDE) (TABLETS) [Concomitant]

REACTIONS (9)
  - CONFUSIONAL STATE [None]
  - HALLUCINATION, VISUAL [None]
  - INTERSTITIAL LUNG DISEASE [None]
  - MEMORY IMPAIRMENT [None]
  - MULTIPLE MYELOMA [None]
  - ORAL INTAKE REDUCED [None]
  - RENAL FAILURE ACUTE [None]
  - RESPIRATORY FAILURE [None]
  - SCAR [None]
